FAERS Safety Report 24846015 (Version 1)
Quarter: 2025Q1

REPORT INFORMATION
  Report Type: Spontaneous
  Country: ES (occurrence: ES)
  Receive Date: 20250115
  Receipt Date: 20250115
  Transmission Date: 20250409
  Serious: Yes (Hospitalization, Other)
  Sender: SANOFI AVENTIS
  Company Number: None

PATIENT
  Age: 61 Year
  Sex: Female

DRUGS (3)
  1. ENOXAPARIN SODIUM [Suspect]
     Active Substance: ENOXAPARIN SODIUM
     Indication: Thrombosis prophylaxis
     Dosage: 20.000MG QD
     Route: 058
     Dates: start: 20241125, end: 20241207
  2. MEROPENEM [Concomitant]
     Active Substance: MEROPENEM
     Route: 042
  3. LINEZOLID [Concomitant]
     Active Substance: LINEZOLID

REACTIONS (2)
  - Anti-platelet factor 4 antibody positive [Recovered/Resolved]
  - Thrombocytopenia [Recovered/Resolved]

NARRATIVE: CASE EVENT DATE: 20241205
